FAERS Safety Report 8578194-6 (Version None)
Quarter: 2012Q3

REPORT INFORMATION
  Report Type: 
  Country: None (occurrence: None)
  Receive Date: 20120808
  Receipt Date: 20120806
  Transmission Date: 20120928
  Serious: No
  Sender: FDA-Public Use
  Company Number: US-PFIZER INC-2012191954

PATIENT
  Age: 34 Year
  Sex: Female
  Weight: 48.526 kg

DRUGS (2)
  1. NICOTROL [Suspect]
     Indication: SMOKING CESSATION THERAPY
     Dosage: UNK, DAILY
     Dates: start: 20120806
  2. NICOTROL [Suspect]
     Indication: SMOKING CESSATION THERAPY
     Dosage: UNK

REACTIONS (2)
  - DRUG DISPENSING ERROR [None]
  - NASAL DISCOMFORT [None]
